FAERS Safety Report 24302000 (Version 1)
Quarter: 2024Q3

REPORT INFORMATION
  Report Type: Spontaneous
  Country: GB (occurrence: GB)
  Receive Date: 20240910
  Receipt Date: 20240910
  Transmission Date: 20241017
  Serious: Yes (Death, Other)
  Sender: BAYER
  Company Number: None

PATIENT
  Age: 88 Year

DRUGS (17)
  1. CIPROFLOXACIN [Suspect]
     Active Substance: CIPROFLOXACIN
     Dosage: 500MG TABLET
     Route: 048
  2. AMIODARONE [Concomitant]
     Active Substance: AMIODARONE
  3. NYSTATIN [Concomitant]
     Active Substance: NYSTATIN
  4. AZTREONAM [Concomitant]
     Active Substance: AZTREONAM
  5. SIMVASTATIN [Concomitant]
     Active Substance: SIMVASTATIN
  6. Adcal [Concomitant]
  7. EDOXABAN [Concomitant]
     Active Substance: EDOXABAN
  8. PREDNISOLONE [Concomitant]
     Active Substance: PREDNISOLONE
  9. FUROSEMIDE [Concomitant]
     Active Substance: FUROSEMIDE
  10. SENNA [Concomitant]
     Active Substance: SENNA LEAF\SENNOSIDES\SENNOSIDES A AND B
  11. ALLOPURINOL [Concomitant]
     Active Substance: ALLOPURINOL
  12. FLUCONAZOLE [Concomitant]
     Active Substance: FLUCONAZOLE
  13. BISOPROLOL [Concomitant]
     Active Substance: BISOPROLOL\BISOPROLOL FUMARATE
  14. METRONIDAZOLE [Concomitant]
     Active Substance: METRONIDAZOLE
  15. CARBOCYSTEINE [Concomitant]
     Active Substance: CARBOCYSTEINE
  16. PYRIDOSTIGMINE [Concomitant]
     Active Substance: PYRIDOSTIGMINE
  17. TEICOPLANIN [Concomitant]
     Active Substance: TEICOPLANIN

REACTIONS (1)
  - Myasthenia gravis [Fatal]
